FAERS Safety Report 7675250-1 (Version None)
Quarter: 2011Q3

REPORT INFORMATION
  Report Type: 
  Country: None (occurrence: None)
  Receive Date: 20110810
  Receipt Date: 20110805
  Transmission Date: 20111222
  Serious: Yes (Hospitalization, Disabling, Other)
  Sender: FDA-Public Use
  Company Number: US-PFIZER INC-2008066089

PATIENT
  Sex: Male

DRUGS (3)
  1. CHANTIX [Suspect]
     Dosage: STARTER/1 MG, UNK
     Dates: start: 20080613, end: 20080704
  2. ALCOHOL [Suspect]
  3. CHANTIX [Suspect]
     Indication: SMOKING CESSATION THERAPY
     Dosage: STARTER/1 MG, UNK
     Dates: start: 20071106, end: 20071120

REACTIONS (30)
  - ANKLE FRACTURE [None]
  - FEAR [None]
  - EMOTIONAL DISORDER [None]
  - FALL [None]
  - ALCOHOL POISONING [None]
  - CONSTIPATION [None]
  - OEDEMA PERIPHERAL [None]
  - SPINAL COMPRESSION FRACTURE [None]
  - FLATULENCE [None]
  - WEIGHT DECREASED [None]
  - ASTHENIA [None]
  - ABNORMAL BEHAVIOUR [None]
  - DEPRESSION [None]
  - ABNORMAL DREAMS [None]
  - FATIGUE [None]
  - FOOT DEFORMITY [None]
  - LUMBAR VERTEBRAL FRACTURE [None]
  - FIBULA FRACTURE [None]
  - CONCUSSION [None]
  - POST-TRAUMATIC STRESS DISORDER [None]
  - INSOMNIA [None]
  - IRRITABILITY [None]
  - INJURY [None]
  - DECREASED APPETITE [None]
  - PAIN [None]
  - FOOT FRACTURE [None]
  - HALLUCINATION [None]
  - ANXIETY [None]
  - SOMNAMBULISM [None]
  - SINUS DISORDER [None]
